FAERS Safety Report 19744942 (Version 1)
Quarter: 2021Q3

REPORT INFORMATION
  Report Type: Spontaneous
  Country: US (occurrence: US)
  Receive Date: 20210824
  Receipt Date: 20210824
  Transmission Date: 20211014
  Serious: Yes (Life-Threatening, Hospitalization, Disabling, Other)
  Sender: FDA-Public Use
  Company Number: None

PATIENT
  Age: 43 Year
  Sex: Male
  Weight: 72 kg

DRUGS (2)
  1. KING KRATOM [Suspect]
     Active Substance: HERBALS\MITRAGYNINE
     Indication: DEPRESSION
     Dosage: ?          QUANTITY:50 CAPSULE(S);?
     Route: 048
     Dates: start: 20200101, end: 20210810
  2. KING KRATOM [Suspect]
     Active Substance: HERBALS\MITRAGYNINE
     Indication: ANXIETY
     Dosage: ?          QUANTITY:50 CAPSULE(S);?
     Route: 048
     Dates: start: 20200101, end: 20210810

REACTIONS (9)
  - Pain [None]
  - Fatigue [None]
  - Libido decreased [None]
  - Hypersensitivity [None]
  - Urticaria [None]
  - Dizziness [None]
  - Dependence [None]
  - Headache [None]
  - Pancreatitis [None]

NARRATIVE: CASE EVENT DATE: 20200101
